FAERS Safety Report 5648447-X (Version None)
Quarter: 2008Q1

REPORT INFORMATION
  Report Type: 
  Country: None (occurrence: None)
  Receive Date: 20080304
  Receipt Date: 20080228
  Transmission Date: 20080703
  Serious: Yes (Death, Life-Threatening, Disabling, Other)
  Sender: FDA-Public Use
  Company Number: PHBS2007JP20591

PATIENT
  Age: 5 Month
  Sex: Male
  Weight: 8 kg

DRUGS (11)
  1. SANDIMMUNE [Suspect]
     Indication: CORD BLOOD TRANSPLANT THERAPY
     Dosage: 23 MG/DAY; 3 MG/KG
     Route: 042
     Dates: start: 20071105, end: 20071123
  2. DORMICUM [Suspect]
     Indication: SEDATION
     Dosage: 38 MG/DAY
     Route: 042
     Dates: start: 20071019, end: 20071123
  3. MIOBLOCK [Suspect]
     Indication: SEDATION
     Dosage: 23 MG/DAY
     Dates: start: 20071019, end: 20071123
  4. FENTANYL [Suspect]
     Indication: SEDATION
     Dosage: 540 UG/DAY
     Route: 042
     Dates: start: 20071101, end: 20071123
  5. BENAMBAX [Concomitant]
     Indication: PNEUMOCYSTIS JIROVECI PNEUMONIA
     Dosage: 30 MG/D
     Route: 042
     Dates: start: 20071007, end: 20071111
  6. DENOSINE [Concomitant]
     Indication: CYTOMEGALOVIRUS INFECTION
     Dosage: 40 MG/D
     Route: 042
     Dates: start: 20071021, end: 20071111
  7. FUNGUARD [Concomitant]
     Indication: FUNGAL INFECTION
     Dosage: 10 MG/D
     Route: 042
     Dates: start: 20071105, end: 20071111
  8. TAZOCIN [Concomitant]
     Indication: BACTERIAL INFECTION
     Dosage: 900 MG/D
     Route: 042
     Dates: start: 20071105, end: 20071108
  9. MODACIN [Concomitant]
     Indication: BACTERIAL INFECTION
     Dosage: 900 MG/D
     Route: 042
     Dates: start: 20071108, end: 20071115
  10. VANCOMYCIN [Concomitant]
     Indication: BACTERIAL INFECTION
     Dosage: 480 MG/D
     Route: 042
     Dates: start: 20071108, end: 20071114
  11. BAKTAR [Concomitant]

REACTIONS (31)
  - ACUTE HEPATIC FAILURE [None]
  - ALANINE AMINOTRANSFERASE INCREASED [None]
  - ASPARTATE AMINOTRANSFERASE INCREASED [None]
  - AUTOIMMUNE DISORDER [None]
  - BLOOD ALKALINE PHOSPHATASE INCREASED [None]
  - BLOOD BILIRUBIN INCREASED [None]
  - BLOOD GLUCOSE INCREASED [None]
  - BLOOD LACTATE DEHYDROGENASE INCREASED [None]
  - BLOOD UREA INCREASED [None]
  - C-REACTIVE PROTEIN INCREASED [None]
  - COAGULOPATHY [None]
  - CYSTATIN C INCREASED [None]
  - GAMMA-GLUTAMYLTRANSFERASE INCREASED [None]
  - HAEMATOCRIT DECREASED [None]
  - HAEMOGLOBIN DECREASED [None]
  - HEPATIC NECROSIS [None]
  - HISTIOCYTOSIS HAEMATOPHAGIC [None]
  - INFECTION [None]
  - PANCYTOPENIA [None]
  - PLATELET COUNT DECREASED [None]
  - PROTHROMBIN TIME PROLONGED [None]
  - PULMONARY HAEMORRHAGE [None]
  - PULMONARY OEDEMA [None]
  - PYREXIA [None]
  - RED BLOOD CELL COUNT DECREASED [None]
  - RENAL FAILURE [None]
  - RENAL TUBULAR NECROSIS [None]
  - RESPIRATORY FAILURE [None]
  - RESPIRATORY RATE INCREASED [None]
  - SERUM FERRITIN INCREASED [None]
  - WHITE BLOOD CELL COUNT DECREASED [None]
